FAERS Safety Report 6788230-5 (Version None)
Quarter: 2010Q2

REPORT INFORMATION
  Report Type: 
  Country: None (occurrence: None)
  Receive Date: 20100623
  Receipt Date: 20080213
  Transmission Date: 20101027
  Serious: No
  Sender: FDA-Public Use
  Company Number: US-PFIZER INC-2008014888

PATIENT
  Sex: Female

DRUGS (2)
  1. GEODON [Suspect]
     Indication: ANXIETY
  2. KLONOPIN [Concomitant]
     Indication: ANXIETY

REACTIONS (5)
  - DRUG INEFFECTIVE [None]
  - FEELING ABNORMAL [None]
  - INCORRECT DOSE ADMINISTERED [None]
  - SOMNOLENCE [None]
  - WEIGHT DECREASED [None]
